FAERS Safety Report 5263293-7 (Version None)
Quarter: 2007Q1

REPORT INFORMATION
  Report Type: 
  Country: None (occurrence: None)
  Receive Date: 20061219
  Receipt Date: 20060907
  Transmission Date: 20070707
  Serious: No
  Sender: FDA-Public Use
  Company Number: 2006US001958

PATIENT
  Sex: Male

DRUGS (1)
  1. VESICARE [Suspect]
     Dosage: 5 MG, ORAL
     Route: 048

REACTIONS (2)
  - ABDOMINAL PAIN [None]
  - INSOMNIA [None]
